FAERS Safety Report 8954687 (Version 6)
Quarter: 2016Q3

REPORT INFORMATION
  Report Type: Spontaneous
  Country: US (occurrence: US)
  Receive Date: 20121207
  Receipt Date: 20160908
  Transmission Date: 20161109
  Serious: Yes (Hospitalization, Other)
  Sender: FDA-Public Use
  Company Number: US-GLAXOSMITHKLINE-A0964377A

PATIENT
  Sex: Female

DRUGS (3)
  1. AVANDAMET [Suspect]
     Active Substance: METFORMIN HYDROCHLORIDE\ROSIGLITAZONE MALEATE
     Indication: PRODUCT USED FOR UNKNOWN INDICATION
     Route: 065
  2. AVANDIA [Suspect]
     Active Substance: ROSIGLITAZONE MALEATE
     Indication: DIABETES MELLITUS
     Dosage: 4 MG, UNK
     Route: 065
     Dates: start: 1996
  3. LISINOPRIL. [Suspect]
     Active Substance: LISINOPRIL
     Indication: HYPERTENSION
     Route: 065

REACTIONS (7)
  - Myasthenia gravis [Unknown]
  - Speech disorder [Unknown]
  - Pneumonia [Unknown]
  - Cough [Unknown]
  - Vascular rupture [Unknown]
  - Hospitalisation [Recovered/Resolved]
  - Malaise [Unknown]
